FAERS Safety Report 8814701 (Version 1)
Quarter: 2012Q4

REPORT INFORMATION
  Report Type: 
  Country: US (occurrence: US)
  Receive Date: 20120928
  Receipt Date: 20120928
  Transmission Date: 20130627
  Serious: No
  Sender: FDA-Public Use
  Company Number: US-GLAXOSMITHKLINE-A0944630A

PATIENT
  Age: 9 Year
  Sex: Female
  Weight: 29.6 kg

DRUGS (1)
  1. LAMICTAL [Suspect]
     Indication: EPILEPSY
     Dosage: 12MG Twice per day
     Route: 048
     Dates: start: 20110819, end: 20110913

REACTIONS (1)
  - Rash [Recovering/Resolving]
